FAERS Safety Report 9722207 (Version 1)
Quarter: 2013Q4

REPORT INFORMATION
  Report Type: Report from Study
  Country: US (occurrence: US)
  Receive Date: 20131202
  Receipt Date: 20131202
  Transmission Date: 20140711
  Serious: Yes (Other)
  Sender: FDA-Public Use
  Company Number: US-ROCHE-1306745

PATIENT
  Sex: Female

DRUGS (1)
  1. AVASTIN [Suspect]
     Indication: CYSTOID MACULAR OEDEMA
     Route: 050
     Dates: start: 20131114, end: 20131114

REACTIONS (6)
  - Cystoid macular oedema [Unknown]
  - Pinguecula [Unknown]
  - Cataract nuclear [Unknown]
  - Retinal depigmentation [Unknown]
  - Retinal neovascularisation [Unknown]
  - Retinal vein occlusion [Unknown]
